FAERS Safety Report 13059707 (Version 1)
Quarter: 2016Q4

REPORT INFORMATION
  Report Type: Spontaneous
  Country: US (occurrence: US)
  Receive Date: 20161223
  Receipt Date: 20161223
  Transmission Date: 20170207
  Serious: Yes (Hospitalization, Disabling, Other)
  Sender: FDA-Public Use
  Company Number: US-PRESTIGE BRANDS -1061248

PATIENT
  Age: 46 Year
  Sex: Female

DRUGS (1)
  1. DIABET AID [Suspect]
     Active Substance: CAPSICUM OLEORESIN
     Indication: MUSCLE SPASMS
     Route: 061
     Dates: start: 20160225, end: 20160227

REACTIONS (20)
  - Gait disturbance [Recovered/Resolved]
  - Vomiting [Recovered/Resolved]
  - Peripheral swelling [None]
  - Blister [Recovered/Resolved]
  - Foot amputation [Recovered/Resolved]
  - Burning sensation [Recovered/Resolved]
  - Toe amputation [Recovered/Resolved]
  - Staphylococcal osteomyelitis [Recovered/Resolved]
  - Hypersensitivity [Recovered/Resolved]
  - Purulence [Recovered/Resolved]
  - Localised infection [Recovered/Resolved]
  - Bacterial infection [Recovered/Resolved]
  - Pain in extremity [Recovered/Resolved]
  - Weight decreased [Recovered/Resolved]
  - Nausea [Recovered/Resolved]
  - Leg amputation [Recovered/Resolved]
  - Discomfort [Recovered/Resolved]
  - Decreased appetite [Recovered/Resolved]
  - Limb operation [Recovered/Resolved]
  - Erythema [Recovered/Resolved]
